FAERS Safety Report 8776366 (Version 1)
Quarter: 2012Q4

REPORT INFORMATION
  Report Type: 
  Country: US (occurrence: US)
  Receive Date: 20120910
  Receipt Date: 20120910
  Transmission Date: 20130627
  Serious: Yes (Other)
  Sender: FDA-Public Use
  Company Number: US-PFIZER INC-2012221524

PATIENT
  Age: 47 Year
  Sex: Female
  Weight: 77.1 kg

DRUGS (3)
  1. LYRICA [Suspect]
     Indication: NERVE INJURY
     Dosage: 150 mg, daily
     Dates: start: 2011, end: 201208
  2. CYMBALTA [Concomitant]
     Dosage: 30 mg, 2x/day
  3. ROBAXIN [Concomitant]
     Indication: MUSCLE RELAXANT THERAPY
     Dosage: 750 mg, 3x/day

REACTIONS (1)
  - Back disorder [Unknown]
